FAERS Safety Report 8147280-7 (Version None)
Quarter: 2012Q1

REPORT INFORMATION
  Report Type: 
  Country: None (occurrence: None)
  Receive Date: 20120218
  Receipt Date: 20110202
  Transmission Date: 20120608
  Serious: Yes (Other)
  Sender: FDA-Public Use
  Company Number: US-ALLERGAN-1101510US

PATIENT
  Age: 43 Year
  Sex: Female

DRUGS (1)
  1. BOTOX COSMETIC [Suspect]
     Indication: SKIN WRINKLING
     Dosage: 25 UNITS, SINGLE
     Route: 030

REACTIONS (6)
  - DYSPHAGIA [None]
  - PHARYNGEAL OEDEMA [None]
  - ANAPHYLACTIC REACTION [None]
  - DYSPNOEA [None]
  - SWOLLEN TONGUE [None]
  - VISUAL IMPAIRMENT [None]
